FAERS Safety Report 16139560 (Version 1)
Quarter: 2019Q2

REPORT INFORMATION
  Report Type: Spontaneous
  Country: DK (occurrence: DK)
  Receive Date: 20190401
  Receipt Date: 20190401
  Transmission Date: 20190711
  Serious: Yes (Death, Hospitalization, Other)
  Sender: FDA-Public Use
  Company Number: DK-ELI_LILLY_AND_COMPANY-DK201903015394

PATIENT
  Age: 17 Year
  Sex: Male

DRUGS (12)
  1. TAXOL [Suspect]
     Active Substance: PACLITAXEL
     Indication: HEPATOCELLULAR CARCINOMA
     Dosage: 175 MG/M2 ON DAY 1 IN A 3-WEEK CYCLE
     Route: 065
  2. SORAFENIB [Suspect]
     Active Substance: SORAFENIB
     Indication: HEPATOCELLULAR CARCINOMA
     Route: 048
  3. GEMCITABINE HYDROCHLORIDE. [Suspect]
     Active Substance: GEMCITABINE HYDROCHLORIDE
     Indication: HEPATOCELLULAR CARCINOMA
     Dosage: 1000 MG/M2, DAY 1 AND DAY 8
     Route: 065
  4. GEMCITABINE HYDROCHLORIDE. [Suspect]
     Active Substance: GEMCITABINE HYDROCHLORIDE
     Dosage: 1000 MG/M2, DAY 1 AND DAY 8
     Route: 065
  5. OXALIPLATIN. [Suspect]
     Active Substance: OXALIPLATIN
     Indication: HEPATOCELLULAR CARCINOMA
     Dosage: 85 MG/M2, 2/M
     Route: 065
  6. DOCETAXEL. [Suspect]
     Active Substance: DOCETAXEL
     Indication: HEPATOCELLULAR CARCINOMA
     Dosage: GIVEN AS FIVE SERIES OF COMBINATION THERAPY (GCT THEREPY) GIVEN ON DAY 1 OF A 3-WEEK CYCLE
     Route: 065
  7. SORAFENIB [Suspect]
     Active Substance: SORAFENIB
     Dosage: 400 UNK
     Route: 048
  8. CISPLATIN. [Suspect]
     Active Substance: CISPLATIN
     Indication: HEPATOCELLULAR CARCINOMA
     Dosage: GIVEN AS FIVE SERIES OF COMBINATION THERAPY (GCT THEREPY) GIVEN ON DAY 1 OF A 3-WEEK CYCLE
     Route: 065
  9. ERLOTINIB [Concomitant]
     Active Substance: ERLOTINIB
     Indication: HEPATOCELLULAR CARCINOMA
     Route: 048
  10. PEGFILGRASTIM [Concomitant]
     Active Substance: PEGFILGRASTIM
     Indication: HEPATOCELLULAR CARCINOMA
     Dosage: ON DAY 2 OF EACH CYCLE
     Route: 058
  11. SORAFENIB [Suspect]
     Active Substance: SORAFENIB
     Dosage: 400 UNK
     Route: 048
  12. CISPLATIN. [Suspect]
     Active Substance: CISPLATIN
     Dosage: GIVEN AS FIVE SERIES OF COMBINATION THERAPY (GCT THEREPY) GIVEN ON DAY 1 OF A 3-WEEK CYCLE
     Route: 065

REACTIONS (15)
  - Malignant neoplasm progression [Fatal]
  - Vomiting [Recovered/Resolved]
  - Paraesthesia [Recovered/Resolved]
  - Anaemia [Recovered/Resolved]
  - Decreased appetite [Recovered/Resolved]
  - Diarrhoea [Recovered/Resolved]
  - Tinnitus [Recovered/Resolved]
  - Alopecia [Recovered/Resolved]
  - Hepatic enzyme increased [Unknown]
  - General physical health deterioration [Unknown]
  - Neutropenia [Recovered/Resolved]
  - Drug ineffective [Unknown]
  - Neutropenia [Unknown]
  - Rash [Unknown]
  - Pruritus [Unknown]
